FAERS Safety Report 4921509-8 (Version None)
Quarter: 2006Q1

REPORT INFORMATION
  Report Type: 
  Country: None (occurrence: None)
  Receive Date: 20060224
  Receipt Date: 20060214
  Transmission Date: 20060701
  Serious: Yes (Hospitalization)
  Sender: FDA-Public Use
  Company Number: US-ABBOTT-06P-163-0324942-00

PATIENT
  Sex: Female

DRUGS (1)
  1. VICODIN ES [Suspect]
     Indication: DRUG USE FOR UNKNOWN INDICATION

REACTIONS (4)
  - HYPERSOMNIA [None]
  - ORAL INTAKE REDUCED [None]
  - PANCREATITIS [None]
  - WEIGHT DECREASED [None]
